FAERS Safety Report 7728119-8 (Version None)
Quarter: 2011Q3

REPORT INFORMATION
  Report Type: 
  Country: None (occurrence: None)
  Receive Date: 20110905
  Receipt Date: 20110901
  Transmission Date: 20111222
  Serious: Yes (Other)
  Sender: FDA-Public Use
  Company Number: CHPA2011DE10777

PATIENT
  Sex: Female
  Weight: 57 kg

DRUGS (4)
  1. SCOPOLAMINE [Suspect]
     Indication: MOTION SICKNESS
     Dosage: 1 DF, Q72H
     Route: 062
     Dates: start: 20110727, end: 20110806
  2. ARIMIDEX [Concomitant]
     Dosage: 1 DF, QD
     Route: 065
  3. METOCLOPRAMIDE HYDROCHLORIDE [Suspect]
     Dosage: UNK DF, UNK
  4. OMEPRAZOLE [Concomitant]
     Dosage: 1 DF, QD
     Route: 065

REACTIONS (15)
  - WEIGHT DECREASED [None]
  - DYSGEUSIA [None]
  - DIZZINESS [None]
  - FEELING DRUNK [None]
  - MALAISE [None]
  - VOMITING [None]
  - FATIGUE [None]
  - PARAESTHESIA [None]
  - BLOOD PRESSURE INCREASED [None]
  - SLOW RESPONSE TO STIMULI [None]
  - HEADACHE [None]
  - BALANCE DISORDER [None]
  - APHAGIA [None]
  - NAUSEA [None]
  - DRY MOUTH [None]
